FAERS Safety Report 9998043 (Version 4)
Quarter: 2014Q2

REPORT INFORMATION
  Report Type: Report from Study
  Country: US (occurrence: US)
  Receive Date: 20140311
  Receipt Date: 20140411
  Transmission Date: 20141212
  Serious: Yes (Hospitalization, Other)
  Sender: FDA-Public Use
  Company Number: PHEH2014US004873

PATIENT
  Age: 52 Year
  Sex: Female

DRUGS (2)
  1. GLEEVEC [Suspect]
     Indication: GASTROINTESTINAL STROMAL TUMOUR
     Dosage: 400 MG, QD
     Route: 048
  2. GLEEVEC [Suspect]
     Dosage: 400 MG, QD
     Route: 048

REACTIONS (9)
  - Cardiac disorder [Unknown]
  - Asthenia [Unknown]
  - Palpitations [Unknown]
  - Vomiting [Unknown]
  - Intestinal obstruction [Unknown]
  - Tumour haemorrhage [Recovering/Resolving]
  - Haemoglobin decreased [Unknown]
  - Dizziness [Unknown]
  - No therapeutic response [Unknown]
